FAERS Safety Report 7783574-2 (Version None)
Quarter: 2011Q3

REPORT INFORMATION
  Report Type: 
  Country: None (occurrence: None)
  Receive Date: 20110928
  Receipt Date: 20101122
  Transmission Date: 20111222
  Serious: No
  Sender: FDA-Public Use
  Company Number: US-TYCO HEALTHCARE/MALLINCKRODT-T201002236

PATIENT

DRUGS (2)
  1. HYDROMORPHONE HCL [Suspect]
     Indication: PAIN
     Dosage: 16 PILLS/DAY UP TO 64 MG
     Route: 048
     Dates: start: 20101102
  2. OXYCONTIN [Concomitant]
     Indication: ABDOMINAL PAIN
     Dosage: 80 MG, QID
     Route: 048
     Dates: end: 20101102

REACTIONS (3)
  - PRURITUS [None]
  - ANXIETY [None]
  - DRUG INEFFECTIVE [None]
